FAERS Safety Report 16979949 (Version 2)
Quarter: 2019Q4

REPORT INFORMATION
  Report Type: Spontaneous
  Country: US (occurrence: US)
  Receive Date: 20191031
  Receipt Date: 20191107
  Transmission Date: 20200122
  Serious: Yes (Hospitalization)
  Sender: FDA-Public Use
  Company Number: US-HORIZON-KRY-0936-2019

PATIENT
  Age: 43 Year
  Sex: Male

DRUGS (1)
  1. KRYSTEXXA [Suspect]
     Active Substance: PEGLOTICASE
     Indication: GOUT
     Dosage: EVERY 2 WEEKS
     Dates: start: 20191009, end: 20191023

REACTIONS (4)
  - Gout [Unknown]
  - Dehydration [Unknown]
  - Diabetic ketoacidosis [Unknown]
  - Vision blurred [Unknown]
